FAERS Safety Report 16162420 (Version 2)
Quarter: 2021Q1

REPORT INFORMATION
  Report Type: Spontaneous
  Country: CH (occurrence: CH)
  Receive Date: 20190405
  Receipt Date: 20210317
  Transmission Date: 20210419
  Serious: Yes (Other)
  Sender: FDA-Public Use
  Company Number: CH-BRISTOL-MYERS SQUIBB COMPANY-BMS-2019-031868

PATIENT
  Age: 14 Year
  Sex: Female

DRUGS (2)
  1. IRON SUCROSE [Concomitant]
     Active Substance: IRON SUCROSE
     Indication: IRON DEFICIENCY
     Dosage: UNK
     Route: 065
  2. LITALIR [Suspect]
     Active Substance: HYDROXYUREA
     Dosage: 20MG/KG INCRESED TO 40MG/KG
     Route: 065

REACTIONS (2)
  - Neutropenia [Unknown]
  - Intentional overdose [Unknown]
